FAERS Safety Report 6173660-5 (Version None)
Quarter: 2009Q2

REPORT INFORMATION
  Report Type: 
  Country: None (occurrence: None)
  Receive Date: 20090429
  Receipt Date: 20090429
  Transmission Date: 20091009
  Serious: Yes (Other)
  Sender: FDA-Public Use
  Company Number: None

PATIENT
  Age: 73 Year
  Sex: Female
  Weight: 81.6475 kg

DRUGS (3)
  1. COZAAR [Suspect]
     Indication: BLOOD PRESSURE INCREASED
     Dosage: 1 PILL A DAY ORAL
     Route: 048
     Dates: start: 20090316
  2. COZAAR [Suspect]
     Indication: BLOOD PRESSURE INCREASED
     Dosage: 1 PILL A DAY ORAL
     Route: 048
     Dates: start: 20090317
  3. COZAAR [Suspect]
     Indication: BLOOD PRESSURE INCREASED
     Dosage: 1 PILL A DAY ORAL
     Route: 048
     Dates: start: 20090318

REACTIONS (3)
  - MOUTH HAEMORRHAGE [None]
  - ORAL PAIN [None]
  - PALATAL DISORDER [None]
